FAERS Safety Report 4430840-4 (Version None)
Quarter: 2004Q3

REPORT INFORMATION
  Report Type: 
  Country: None (occurrence: None)
  Receive Date: 20040823
  Receipt Date: 20040712
  Transmission Date: 20050211
  Serious: Yes (Other)
  Sender: FDA-Public Use
  Company Number: DE-MERCK-0407DEU00130

PATIENT
  Age: 84 Year
  Sex: Female
  Weight: 69 kg

DRUGS (4)
  1. HYDRODIURIL [Concomitant]
     Route: 065
  2. VIOXX [Suspect]
     Indication: LUMBAR VERTEBRAL FRACTURE
     Route: 048
     Dates: start: 20040502, end: 20040508
  3. VIOXX [Suspect]
     Indication: OSTEOPOROSIS
     Route: 048
     Dates: start: 20040502, end: 20040508
  4. VALSARTAN [Suspect]
     Indication: AORTIC VALVE INCOMPETENCE
     Route: 048

REACTIONS (2)
  - DRUG INTERACTION [None]
  - HYPERTENSIVE CRISIS [None]
